FAERS Safety Report 23582596 (Version 4)
Quarter: 2024Q1

REPORT INFORMATION
  Report Type: Report from Study
  Country: IL (occurrence: IL)
  Receive Date: 20240229
  Receipt Date: 20240321
  Transmission Date: 20240409
  Serious: Yes (Death, Hospitalization)
  Sender: FDA-Public Use
  Company Number: IL-ABBVIE-5658012

PATIENT
  Age: 62 Year
  Sex: Male

DRUGS (2)
  1. CARBIDOPA\LEVODOPA [Suspect]
     Active Substance: CARBIDOPA\LEVODOPA
     Indication: Parkinson^s disease
     Dosage: MORNING DOSE 5.0ML, CONTINUOUS DOSE 4.0ML/HOUR, EXTRA DOSE 1.7ML
     Route: 050
     Dates: start: 20130614
  2. CARBIDOPA\LEVODOPA [Suspect]
     Active Substance: CARBIDOPA\LEVODOPA

REACTIONS (4)
  - Pneumonia aspiration [Fatal]
  - Fall [Recovering/Resolving]
  - Musculoskeletal disorder [Recovering/Resolving]
  - Incorrect route of product administration [Recovering/Resolving]

NARRATIVE: CASE EVENT DATE: 20240226
